FAERS Safety Report 7659107-8 (Version None)
Quarter: 2011Q3

REPORT INFORMATION
  Report Type: 
  Country: None (occurrence: None)
  Receive Date: 20110805
  Receipt Date: 20110719
  Transmission Date: 20111222
  Serious: Yes (Other)
  Sender: FDA-Public Use
  Company Number: US-GLAXOSMITHKLINE-A0871227A

PATIENT
  Sex: Female
  Weight: 45.5 kg

DRUGS (15)
  1. ADVAIR DISKUS 100/50 [Concomitant]
  2. BENICAR [Concomitant]
  3. ALBUTEROL SULFATE AUTOHALER [Concomitant]
  4. TRICOR [Concomitant]
  5. EVISTA [Concomitant]
  6. SINGULAIR [Concomitant]
  7. OSCAL D [Concomitant]
  8. ACETAMINOPHEN [Concomitant]
  9. FLONASE [Concomitant]
  10. AVANDIA [Suspect]
     Indication: TYPE 2 DIABETES MELLITUS
     Route: 048
  11. FORTAMET [Concomitant]
  12. AVANDAMET [Suspect]
     Indication: DIABETES MELLITUS
     Route: 048
     Dates: start: 20060101
  13. SULAR [Concomitant]
  14. FERREX [Concomitant]
  15. NEXIUM [Concomitant]

REACTIONS (2)
  - CARDIOVASCULAR DISORDER [None]
  - MYOCARDIAL INFARCTION [None]
